FAERS Safety Report 7626727-6 (Version None)
Quarter: 2011Q3

REPORT INFORMATION
  Report Type: 
  Country: None (occurrence: None)
  Receive Date: 20110714
  Receipt Date: 20110629
  Transmission Date: 20111222
  Serious: Yes (Other)
  Sender: FDA-Public Use
  Company Number: 20110247

PATIENT
  Age: 68 Year
  Sex: Female

DRUGS (5)
  1. STEROID UNSPECIFIED [Suspect]
     Dates: start: 20101208
  2. DIOVAN [Concomitant]
  3. XANAX [Concomitant]
  4. DEXAMETHASONE SODIUM PHOSPHATE [Suspect]
     Indication: CHEST DISCOMFORT
     Dosage: DOSE X 1, INJECTION NOS
     Dates: start: 20101208, end: 20101208
  5. THYROID MEDICINE [Concomitant]

REACTIONS (10)
  - PRODUCT QUALITY ISSUE [None]
  - COUGH [None]
  - WEIGHT DECREASED [None]
  - ORAL PUSTULE [None]
  - VISUAL IMPAIRMENT [None]
  - ABNORMAL SENSATION IN EYE [None]
  - CONDITION AGGRAVATED [None]
  - BLOOD PRESSURE INCREASED [None]
  - RASH PRURITIC [None]
  - EYE PAIN [None]
